FAERS Safety Report 6903947-7 (Version None)
Quarter: 2010Q3

REPORT INFORMATION
  Report Type: 
  Country: None (occurrence: None)
  Receive Date: 20100804
  Receipt Date: 20090218
  Transmission Date: 20110219
  Serious: Yes (Other)
  Sender: FDA-Public Use
  Company Number: US-PFIZER INC-2009173250

PATIENT
  Sex: Female
  Weight: 53.515 kg

DRUGS (2)
  1. LYRICA [Suspect]
     Indication: FIBROMYALGIA
     Route: 048
     Dates: start: 20070812, end: 20070912
  2. THYROID HORMONES [Concomitant]

REACTIONS (2)
  - MUSCULAR WEAKNESS [None]
  - SKIN ATROPHY [None]
